FAERS Safety Report 21666660 (Version 2)
Quarter: 2023Q1

REPORT INFORMATION
  Report Type: Spontaneous
  Country: DE (occurrence: DE)
  Receive Date: 20221201
  Receipt Date: 20230125
  Transmission Date: 20230417
  Serious: Yes (Disabling, Other)
  Sender: FDA-Public Use
  Company Number: DE-DCGMA-22196939

PATIENT
  Age: 36 Year
  Sex: Male
  Weight: 46 kg

DRUGS (1)
  1. CIPROFLOXACIN [Suspect]
     Active Substance: CIPROFLOXACIN
     Indication: Urinary tract infection
     Dosage: UNIT DOSE : 500 MG, DURATION :  2 DAYS
     Route: 048

REACTIONS (15)
  - Pain [Not Recovered/Not Resolved]
  - Tendon pain [Not Recovered/Not Resolved]
  - Gastrointestinal disorder [Not Recovered/Not Resolved]
  - Endocrine disorder [Not Recovered/Not Resolved]
  - Myalgia [Not Recovered/Not Resolved]
  - Loss of personal independence in daily activities [Not Recovered/Not Resolved]
  - Metabolic disorder [Not Recovered/Not Resolved]
  - Impaired work ability [Not Recovered/Not Resolved]
  - Mineral deficiency [Not Recovered/Not Resolved]
  - Hypovitaminosis [Not Recovered/Not Resolved]
  - Food intolerance [Not Recovered/Not Resolved]
  - Mast cell activation syndrome [Not Recovered/Not Resolved]
  - Histamine intolerance [Not Recovered/Not Resolved]
  - Fatigue [Unknown]
  - Depression [Unknown]

NARRATIVE: CASE EVENT DATE: 20200404
